FAERS Safety Report 19999031 (Version 1)
Quarter: 2021Q4

REPORT INFORMATION
  Report Type: Spontaneous
  Country: TR (occurrence: TR)
  Receive Date: 20211026
  Receipt Date: 20211026
  Transmission Date: 20220304
  Serious: Yes (Death, Other)
  Sender: FDA-Public Use
  Company Number: TR-PFIZER INC-202101401548

PATIENT
  Age: 56 Year
  Sex: Male

DRUGS (4)
  1. DOXORUBICIN HYDROCHLORIDE [Suspect]
     Active Substance: DOXORUBICIN HYDROCHLORIDE
     Indication: Progressive multifocal leukoencephalopathy
     Dosage: UNK, CYCLIC (2 CYCLES)
  2. METHYLPREDNISOLONE SODIUM SUCCINATE [Suspect]
     Active Substance: METHYLPREDNISOLONE SODIUM SUCCINATE
     Indication: Progressive multifocal leukoencephalopathy
     Dosage: UNK, CYCLIC (2 CYCLES)
  3. VINCRISTINE SULFATE [Suspect]
     Active Substance: VINCRISTINE SULFATE
     Indication: Progressive multifocal leukoencephalopathy
     Dosage: UNK, CYCLIC (2 CYCLES)
  4. CYCLOPHOSPHAMIDE [Suspect]
     Active Substance: CYCLOPHOSPHAMIDE
     Indication: Progressive multifocal leukoencephalopathy
     Dosage: UNK, CYCLIC (2 CYCLES)

REACTIONS (1)
  - Progressive multifocal leukoencephalopathy [Fatal]
